FAERS Safety Report 6465289-6 (Version None)
Quarter: 2009Q4

REPORT INFORMATION
  Report Type: 
  Country: None (occurrence: None)
  Receive Date: 20091201
  Receipt Date: 20090408
  Transmission Date: 20100525
  Serious: No
  Sender: FDA-Public Use
  Company Number: US-AMGEN-KDL266943

PATIENT
  Sex: Female

DRUGS (2)
  1. ENBREL [Suspect]
     Indication: RHEUMATOID ARTHRITIS
     Route: 058
     Dates: start: 20080201, end: 20080701
  2. ENBREL [Suspect]
     Indication: PSORIASIS

REACTIONS (4)
  - ARTHROPATHY [None]
  - MUSCULAR WEAKNESS [None]
  - POSTMENOPAUSAL HAEMORRHAGE [None]
  - PSORIASIS [None]
